FAERS Safety Report 12187010 (Version 1)
Quarter: 2016Q1

REPORT INFORMATION
  Report Type: Spontaneous
  Country: US (occurrence: None)
  Receive Date: 20160316
  Receipt Date: 20160316
  Transmission Date: 20160526
  Serious: No
  Sender: FDA-Public Use
  Company Number: None

PATIENT
  Age: 44 Year
  Sex: Female

DRUGS (5)
  1. XELJANZ [Suspect]
     Active Substance: TOFACITINIB CITRATE
     Indication: RHEUMATOID ARTHRITIS
     Route: 048
     Dates: start: 20130813
  2. SUDAFED [Concomitant]
     Active Substance: PSEUDOEPHEDRINE HYDROCHLORIDE
  3. CLARITIN [Concomitant]
     Active Substance: LORATADINE
  4. MELOXICAM. [Concomitant]
     Active Substance: MELOXICAM
  5. ADVIL [Concomitant]
     Active Substance: IBUPROFEN

REACTIONS (3)
  - Abdominal discomfort [None]
  - Rheumatoid arthritis [None]
  - Drug dose omission [None]

NARRATIVE: CASE EVENT DATE: 201603
